FAERS Safety Report 9658883 (Version 1)
Quarter: 2013Q4

REPORT INFORMATION
  Report Type: Spontaneous
  Country: GB (occurrence: GB)
  Receive Date: 20131030
  Receipt Date: 20131030
  Transmission Date: 20140711
  Serious: Yes (Other)
  Sender: FDA-Public Use
  Company Number: GB-TEVA-439666ISR

PATIENT
  Age: 73 Year
  Sex: Female
  Weight: 58.7 kg

DRUGS (8)
  1. DILTIAZEM [Suspect]
     Indication: ATRIAL FIBRILLATION
     Route: 048
     Dates: start: 20130913, end: 20131004
  2. APIXABAN [Suspect]
     Indication: ATRIAL FIBRILLATION
     Route: 048
     Dates: start: 20130913, end: 20131007
  3. SALBUTAMOL [Concomitant]
     Dosage: 2 PUFFS AS NECESSARY.
  4. DULOXETINE HYDROCHLORIDE [Concomitant]
  5. CLENIL MODULITE [Concomitant]
     Dosage: TWO PUFFS, TWICE DAILY
  6. CYANOCOBALAMIN [Concomitant]
  7. AMOXICILLIN [Concomitant]
     Indication: LOWER RESPIRATORY TRACT INFECTION BACTERIAL
     Dates: start: 20130820, end: 20130827
  8. CO-AMOXICLAV [Concomitant]
     Indication: LOWER RESPIRATORY TRACT INFECTION BACTERIAL
     Dates: start: 20130914, end: 20130919

REACTIONS (2)
  - Purpura [Not Recovered/Not Resolved]
  - Rash papular [Not Recovered/Not Resolved]
